FAERS Safety Report 25442050 (Version 1)
Quarter: 2025Q2

REPORT INFORMATION
  Report Type: Spontaneous
  Country: US (occurrence: US)
  Receive Date: 20250616
  Receipt Date: 20250616
  Transmission Date: 20250716
  Serious: No
  Sender: MISSION PHARMACAL COMPANY
  Company Number: US-Mission Pharmacal Company-2178817

PATIENT
  Age: 23 Year
  Sex: Male

DRUGS (2)
  1. THIOLA EC [Suspect]
     Active Substance: TIOPRONIN
     Indication: Cystinuria
     Dates: start: 20190824
  2. POTASSIUM CITRATE [Concomitant]
     Active Substance: POTASSIUM CITRATE

REACTIONS (1)
  - Hyperhidrosis [Unknown]
